FAERS Safety Report 5610761-1 (Version None)
Quarter: 2008Q1

REPORT INFORMATION
  Report Type: 
  Country: None (occurrence: None)
  Receive Date: 20080201
  Receipt Date: 20080123
  Transmission Date: 20080703
  Serious: Yes (Other)
  Sender: FDA-Public Use
  Company Number: FR-ASTRAZENECA-2008CG00160

PATIENT
  Age: 6 Month
  Sex: Female

DRUGS (3)
  1. EMLA [Suspect]
     Indication: LOCAL ANAESTHESIA
     Dosage: HALF PATCH ON EACH LEG
     Route: 061
     Dates: start: 20071023, end: 20071023
  2. PREVENAR [Suspect]
     Indication: IMMUNISATION
     Dates: start: 20071023, end: 20071023
  3. PENTAVAC [Concomitant]
     Indication: IMMUNISATION
     Dates: start: 20071023, end: 20071023

REACTIONS (1)
  - GENERALISED ERYTHEMA [None]
